FAERS Safety Report 7442973-9 (Version None)
Quarter: 2011Q2

REPORT INFORMATION
  Report Type: 
  Country: None (occurrence: None)
  Receive Date: 20110428
  Receipt Date: 20051129
  Transmission Date: 20111010
  Serious: Yes (Other)
  Sender: FDA-Public Use
  Company Number: US-MERCK-0510USA09383

PATIENT
  Age: 75 Year
  Sex: Male
  Weight: 91 kg

DRUGS (7)
  1. ZETIA [Suspect]
     Indication: BLOOD CHOLESTEROL INCREASED
     Route: 048
     Dates: start: 20030922, end: 20051015
  2. PLAVIX [Concomitant]
     Route: 065
  3. ZOCOR [Concomitant]
     Route: 048
     Dates: start: 20020101
  4. ZETIA [Suspect]
     Indication: HYPERLIPIDAEMIA
     Route: 048
     Dates: start: 20030922, end: 20051015
  5. AMIODARONE [Concomitant]
     Route: 065
  6. PRINIVIL [Concomitant]
     Route: 048
     Dates: start: 20050912
  7. TOPROL-XL [Concomitant]
     Route: 048
     Dates: start: 20051015

REACTIONS (2)
  - CHOLELITHIASIS [None]
  - CARDIOVASCULAR DISORDER [None]
